FAERS Safety Report 6770507-0 (Version None)
Quarter: 2010Q2

REPORT INFORMATION
  Report Type: 
  Country: None (occurrence: None)
  Receive Date: 20100615
  Receipt Date: 20100610
  Transmission Date: 20101027
  Serious: Yes (Death)
  Sender: FDA-Public Use
  Company Number: FR-ASTRAZENECA-2010SE27336

PATIENT
  Age: 97 Year
  Sex: Male

DRUGS (3)
  1. ZESTORETIC [Suspect]
     Dosage: 20/12.5 MG DAILY
     Route: 048
  2. FUROSEMIDE [Interacting]
     Route: 048
  3. VOLTAREN [Interacting]
     Route: 030
     Dates: start: 20100101

REACTIONS (2)
  - DRUG INTERACTION [None]
  - RENAL FAILURE ACUTE [None]
